FAERS Safety Report 5191263-6 (Version None)
Quarter: 2006Q4

REPORT INFORMATION
  Report Type: 
  Country: None (occurrence: None)
  Receive Date: 20061220
  Receipt Date: 20061220
  Transmission Date: 20070319
  Serious: Yes (Hospitalization)
  Sender: FDA-Public Use
  Company Number: None

PATIENT
  Age: 60 Year
  Sex: Female
  Weight: 99.7913 kg

DRUGS (20)
  1. CARBOPLATIN [Suspect]
     Indication: SMALL CELL LUNG CANCER STAGE UNSPECIFIED
     Dosage: IV OTO
     Dates: start: 20060919
  2. ETOPOSIDE [Suspect]
     Indication: SMALL CELL LUNG CANCER STAGE UNSPECIFIED
     Dosage: IV OTO
     Dates: start: 20060919
  3. LEVOXYL [Concomitant]
  4. NEXIUM [Concomitant]
  5. CYMBALTA [Concomitant]
  6. AVANDIA [Concomitant]
  7. ABILIFY [Concomitant]
  8. TEGRETOL [Concomitant]
  9. VOLTAREN [Concomitant]
  10. KLOR-CON [Concomitant]
  11. TORSEMIDE [Concomitant]
  12. ZYRTEC [Concomitant]
  13. COZAAR [Concomitant]
  14. MIRTAZAPINE [Concomitant]
  15. HUMALOG [Concomitant]
  16. LANTUS [Concomitant]
  17. ASPIRIN [Concomitant]
  18. METAMUCIL [Concomitant]
  19. LEVAQUIN [Concomitant]
  20. PRIMAXIN [Concomitant]

REACTIONS (7)
  - ADVERSE DRUG REACTION [None]
  - DISORIENTATION [None]
  - FLUSHING [None]
  - NAUSEA [None]
  - PYREXIA [None]
  - TREMOR [None]
  - VOMITING [None]
